FAERS Safety Report 15517881 (Version 1)
Quarter: 2018Q4

REPORT INFORMATION
  Report Type: Spontaneous
  Country: US (occurrence: US)
  Receive Date: 20181017
  Receipt Date: 20181017
  Transmission Date: 20190205
  Serious: No
  Sender: FDA-Public Use
  Company Number: US-PERRIGO-18US007818

PATIENT
  Age: 41 Year
  Sex: Female
  Weight: 52.15 kg

DRUGS (2)
  1. NITROGLYCERIN. [Suspect]
     Active Substance: NITROGLYCERIN
     Dosage: UNKNOWN, SINGLE
     Route: 060
     Dates: start: 20180730, end: 20180730
  2. NITROGLYCERIN. [Suspect]
     Active Substance: NITROGLYCERIN
     Indication: CHEST DISCOMFORT
     Dosage: 400 MCG, QD, PRN
     Route: 060
     Dates: start: 2013, end: 20180729

REACTIONS (4)
  - Somnolence [Recovered/Resolved]
  - Dizziness [Recovered/Resolved]
  - Therapeutic response unexpected [Unknown]
  - Incorrect dose administered [Recovered/Resolved]

NARRATIVE: CASE EVENT DATE: 20180730
